FAERS Safety Report 20923471 (Version 1)
Quarter: 2022Q2

REPORT INFORMATION
  Report Type: Spontaneous
  Country: CN (occurrence: CN)
  Receive Date: 20220607
  Receipt Date: 20220607
  Transmission Date: 20220721
  Serious: Yes (Other)
  Sender: FDA-Public Use
  Company Number: CN-ROCHE-3105253

PATIENT
  Age: 69 Year
  Sex: Female

DRUGS (45)
  1. ERLOTINIB [Suspect]
     Active Substance: ERLOTINIB
     Indication: Cancer surgery
     Dosage: UNK UNK, UNKNOWN FREQ.
     Route: 048
     Dates: start: 201410, end: 201610
  2. ERLOTINIB [Suspect]
     Active Substance: ERLOTINIB
     Indication: Adenocarcinoma
  3. ERLOTINIB [Suspect]
     Active Substance: ERLOTINIB
     Indication: Brain cancer metastatic
  4. ERLOTINIB [Suspect]
     Active Substance: ERLOTINIB
     Indication: Metastases to bone
  5. AVASTIN [Suspect]
     Active Substance: BEVACIZUMAB
     Indication: Cancer surgery
     Dosage: 300 MG, EVERY 3 WEEKS (A+T(-DEC-2018 TO-MAR-2019))
     Route: 065
  6. AVASTIN [Suspect]
     Active Substance: BEVACIZUMAB
     Indication: Adenocarcinoma
     Dosage: 300 MG, EVERY 3 WEEKS (A+AC(-APR-2019 TO -SEP-2019)
     Route: 065
  7. AVASTIN [Suspect]
     Active Substance: BEVACIZUMAB
     Indication: Brain cancer metastatic
     Dosage: 300 MG, UNKNOWN FREQ. (TORIPALIMAB + BEVACIZUMAB + DOCETAXEL)
     Route: 065
     Dates: start: 20191128
  8. AVASTIN [Suspect]
     Active Substance: BEVACIZUMAB
     Indication: Metastases to bone
     Dosage: 400 MG, UNKNOWN FREQ. (ICIS+BEV (-JUL-2020 TO-SEP 2020,SINCE -NOV-2021))
     Route: 065
  9. AVASTIN [Suspect]
     Active Substance: BEVACIZUMAB
     Dosage: 400 MG, UNKNOWN FREQ. (TORIPALIMAB+ BEVACIZUMAB + PACLITAXEL (-OCT-2020 TO-OCT-2021))
     Route: 065
  10. CABOZANTINIB [Concomitant]
     Active Substance: CABOZANTINIB
     Indication: Cancer surgery
     Dosage: UNK UNK, UNKNOWN FREQ.
     Route: 065
     Dates: start: 201608
  11. CABOZANTINIB [Concomitant]
     Active Substance: CABOZANTINIB
     Indication: Adenocarcinoma
  12. CABOZANTINIB [Concomitant]
     Active Substance: CABOZANTINIB
     Indication: Brain cancer metastatic
  13. CABOZANTINIB [Concomitant]
     Active Substance: CABOZANTINIB
     Indication: Metastases to bone
  14. OSIMERTINIB [Concomitant]
     Active Substance: OSIMERTINIB
     Indication: Cancer surgery
     Route: 065
     Dates: start: 201610
  15. OSIMERTINIB [Concomitant]
     Active Substance: OSIMERTINIB
     Indication: Adenocarcinoma
     Dosage: 180 MG, ONCE DAILY (A+T (-DEC-2018 TO-MAR-2019))
     Route: 065
  16. OSIMERTINIB [Concomitant]
     Active Substance: OSIMERTINIB
     Indication: Brain cancer metastatic
  17. OSIMERTINIB [Concomitant]
     Active Substance: OSIMERTINIB
     Indication: Metastases to bone
  18. PEMETREXED DISODIUM [Concomitant]
     Active Substance: PEMETREXED DISODIUM
     Indication: Cancer surgery
     Dosage: 0.7 G, EVERY 3 WEEKS (A+AC (-APR-2019 TO -SEP-2019, 6 CYCLES)
     Route: 065
  19. PEMETREXED DISODIUM [Concomitant]
     Active Substance: PEMETREXED DISODIUM
     Indication: Adenocarcinoma
  20. PEMETREXED DISODIUM [Concomitant]
     Active Substance: PEMETREXED DISODIUM
     Indication: Brain cancer metastatic
  21. PEMETREXED DISODIUM [Concomitant]
     Active Substance: PEMETREXED DISODIUM
     Indication: Metastases to bone
  22. CARBOPLATIN [Concomitant]
     Active Substance: CARBOPLATIN
     Indication: Cancer surgery
     Dosage: 0.4 G, EVERY 3 WEEKS (A+AC (-APR-2019 TO -SEP-2019))
     Route: 065
  23. CARBOPLATIN [Concomitant]
     Active Substance: CARBOPLATIN
     Indication: Adenocarcinoma
  24. CARBOPLATIN [Concomitant]
     Active Substance: CARBOPLATIN
     Indication: Brain cancer metastatic
  25. CARBOPLATIN [Concomitant]
     Active Substance: CARBOPLATIN
     Indication: Metastases to bone
  26. DOCETAXEL [Concomitant]
     Active Substance: DOCETAXEL
     Indication: Cancer surgery
     Dosage: 100 MG, UNKNOWN FREQ. (TORIPALIMAB + BEVACIZUMAB + DOCETAXEL)
     Route: 065
     Dates: start: 20191128
  27. DOCETAXEL [Concomitant]
     Active Substance: DOCETAXEL
     Indication: Adenocarcinoma
  28. DOCETAXEL [Concomitant]
     Active Substance: DOCETAXEL
     Indication: Brain cancer metastatic
  29. DOCETAXEL [Concomitant]
     Active Substance: DOCETAXEL
     Indication: Metastases to bone
  30. OXYCODONE HYDROCHLORIDE [Concomitant]
     Active Substance: OXYCODONE HYDROCHLORIDE
     Indication: Cancer surgery
     Dosage: 400 MG, EVERY 12 HOURS (FROM 10 OCT 2019 TO 2 NOV 2019)
     Route: 065
  31. OXYCODONE HYDROCHLORIDE [Concomitant]
     Active Substance: OXYCODONE HYDROCHLORIDE
     Indication: Adenocarcinoma
  32. OXYCODONE HYDROCHLORIDE [Concomitant]
     Active Substance: OXYCODONE HYDROCHLORIDE
     Indication: Brain cancer metastatic
  33. OXYCODONE HYDROCHLORIDE [Concomitant]
     Active Substance: OXYCODONE HYDROCHLORIDE
     Indication: Metastases to bone
  34. TORIPALIMAB [Concomitant]
     Active Substance: TORIPALIMAB
     Indication: Cancer surgery
     Dosage: 240 MG, UNKNOWN FREQ. (TORIPALIMAB+ BEVACIZUMAB + DOCETAXEL)
     Route: 065
     Dates: start: 20191128
  35. TORIPALIMAB [Concomitant]
     Active Substance: TORIPALIMAB
     Indication: Adenocarcinoma
     Dosage: 240 MG, UNKNOWN FREQ. (ICIS+BEV (-JUL-2020 TO -SEP-2020,SINCE -NOV-2021))
     Route: 065
  36. TORIPALIMAB [Concomitant]
     Active Substance: TORIPALIMAB
     Indication: Brain cancer metastatic
     Dosage: 240 MG, UNKNOWN FREQ. (TORIPALIMAB + BEVACIZUMAB + PACLITAXEL (ALBUMIN BOUND) (OCT2020 TO OCT2021))
     Route: 065
  37. TORIPALIMAB [Concomitant]
     Active Substance: TORIPALIMAB
     Indication: Metastases to bone
  38. CATEQUENTINIB [Concomitant]
     Active Substance: CATEQUENTINIB
     Indication: Cancer surgery
     Dosage: 12 MG, UNKNOWN FREQ. (ANLOTINIB+ICIS)
     Route: 065
     Dates: start: 202009
  39. CATEQUENTINIB [Concomitant]
     Active Substance: CATEQUENTINIB
     Indication: Adenocarcinoma
  40. CATEQUENTINIB [Concomitant]
     Active Substance: CATEQUENTINIB
     Indication: Brain cancer metastatic
  41. CATEQUENTINIB [Concomitant]
     Active Substance: CATEQUENTINIB
     Indication: Metastases to bone
  42. PACLITAXEL [Concomitant]
     Active Substance: PACLITAXEL
     Indication: Cancer surgery
     Dosage: 300 MG, UNKNOWN FREQ. (TORIPALIMAB + BEVACIZUMAB + PACLITAXEL (-OCT-2020 TO -OCT-2021))
     Route: 065
  43. PACLITAXEL [Concomitant]
     Active Substance: PACLITAXEL
     Indication: Adenocarcinoma
  44. PACLITAXEL [Concomitant]
     Active Substance: PACLITAXEL
     Indication: Brain cancer metastatic
  45. PACLITAXEL [Concomitant]
     Active Substance: PACLITAXEL
     Indication: Metastases to bone

REACTIONS (5)
  - Deep vein thrombosis [Unknown]
  - Hypertension [Unknown]
  - Proteinuria [Unknown]
  - Off label use [Unknown]
  - Intentional product use issue [Unknown]

NARRATIVE: CASE EVENT DATE: 20161001
